FAERS Safety Report 9997938 (Version 1)
Quarter: 2014Q1

REPORT INFORMATION
  Report Type: Spontaneous
  Country: DE (occurrence: DE)
  Receive Date: 20140311
  Receipt Date: 20140311
  Transmission Date: 20141002
  Serious: Yes (Congenital Anomaly)
  Sender: FDA-Public Use
  Company Number: DE-MYLANLABS-2014S1004482

PATIENT
  Age: 1 Day
  Sex: Male
  Weight: 4 kg

DRUGS (6)
  1. METOPROLOL [Suspect]
     Indication: HYPERTENSION
     Dosage: 50 [MG/D ]
     Route: 064
  2. BISOPROLOL [Concomitant]
     Indication: HYPERTENSION
     Dosage: 5 [MG/D (2X2.5) ]
     Route: 064
     Dates: start: 20120430, end: 20120605
  3. INSULIN [Concomitant]
     Indication: GESTATIONAL DIABETES
     Dosage: 8 [IE/D ]
     Route: 064
     Dates: end: 20130205
  4. FOLIO [Concomitant]
     Indication: PROPHYLAXIS OF NEURAL TUBE DEFECT
     Dosage: 0.4 [MG/D ]/ EXACT START OF THERAPY NOT KNOWN.
     Route: 064
     Dates: end: 20130205
  5. DOPEGYT [Concomitant]
     Indication: HYPERTENSION
     Dosage: 750 [MG/D (3X250) ]
     Route: 064
  6. ASS 100 [Concomitant]
     Indication: THROMBOSIS PROPHYLAXIS
     Dosage: 100 [MG/D ]
     Route: 064

REACTIONS (3)
  - Congenital hydronephrosis [Not Recovered/Not Resolved]
  - Ureteric stenosis [Not Recovered/Not Resolved]
  - Exposure during pregnancy [Recovered/Resolved]
